FAERS Safety Report 12849105 (Version 4)
Quarter: 2018Q2

REPORT INFORMATION
  Report Type: Report from Study
  Country: CA (occurrence: CA)
  Receive Date: 20161014
  Receipt Date: 20180426
  Transmission Date: 20180711
  Serious: Yes (Other)
  Sender: FDA-Public Use
  Company Number: CA-BRISTOL-MYERS SQUIBB COMPANY-BMS-2016-084065

PATIENT
  Age: 80 Year
  Sex: Female

DRUGS (2)
  1. METFORMIN [Concomitant]
     Active Substance: METFORMIN HYDROCHLORIDE
     Indication: PRODUCT USED FOR UNKNOWN INDICATION
     Dosage: UNK
     Route: 065
  2. ABATACEPT [Suspect]
     Active Substance: ABATACEPT
     Indication: RHEUMATOID ARTHRITIS
     Dosage: 750 MG, Q4WK
     Route: 042
     Dates: start: 20160921

REACTIONS (7)
  - Urinary incontinence [Unknown]
  - Headache [Unknown]
  - Fall [Unknown]
  - Cataract operation [Unknown]
  - Drug ineffective [Not Recovered/Not Resolved]
  - Influenza [Unknown]
  - Hypotension [Unknown]

NARRATIVE: CASE EVENT DATE: 20160921
